FAERS Safety Report 6479781-1 (Version None)
Quarter: 2009Q4

REPORT INFORMATION
  Report Type: 
  Country: None (occurrence: None)
  Receive Date: 20091208
  Receipt Date: 20091201
  Transmission Date: 20100525
  Serious: Yes (Hospitalization)
  Sender: FDA-Public Use
  Company Number: PHHO2009US08472

PATIENT
  Weight: 50.34 kg

DRUGS (8)
  1. AFINITOR [Suspect]
     Indication: ENDOMETRIAL CANCER METASTATIC
     Dosage: 5 MG, QD
     Dates: start: 20090616, end: 20090620
  2. TOPOTECAN [Suspect]
     Indication: ENDOMETRIAL CANCER METASTATIC
     Dosage: D1-5 Q 21 DAYS
     Route: 048
     Dates: start: 20090623, end: 20090629
  3. TRAMADOL HCL [Concomitant]
  4. LISINOPRIL [Concomitant]
  5. SYNTHROID [Concomitant]
  6. AMLOPIN [Concomitant]
  7. PLAVIX [Concomitant]
  8. TYLENOL (CAPLET) [Concomitant]

REACTIONS (2)
  - PLATELET TRANSFUSION [None]
  - THROMBOCYTOPENIA [None]
